FAERS Safety Report 10467562 (Version 2)
Quarter: 2014Q3

REPORT INFORMATION
  Report Type: Spontaneous
  Country: US (occurrence: US)
  Receive Date: 20140922
  Receipt Date: 20140922
  Transmission Date: 20150326
  Serious: Yes (Hospitalization)
  Sender: FDA-Public Use
  Company Number: US-GLAXOSMITHKLINE-A0814077A

PATIENT
  Sex: Male

DRUGS (1)
  1. AVANDIA [Suspect]
     Active Substance: ROSIGLITAZONE MALEATE
     Indication: TYPE 2 DIABETES MELLITUS
     Dosage: 4MG PER DAY
     Route: 048
     Dates: start: 1998, end: 20071217

REACTIONS (13)
  - Aneurysm [Unknown]
  - Vitreous degeneration [Unknown]
  - Cataract [Unknown]
  - Corneal oedema [Unknown]
  - Macular oedema [Unknown]
  - Blindness [Unknown]
  - Glaucoma [Unknown]
  - Choroidal neovascularisation [Unknown]
  - Retinal detachment [Unknown]
  - Diabetic nephropathy [Unknown]
  - Renal failure [Unknown]
  - Diabetic retinopathy [Unknown]
  - Lens dislocation [Unknown]
